FAERS Safety Report 10873866 (Version 1)
Quarter: 2015Q1

REPORT INFORMATION
  Report Type: Spontaneous
  Country: US (occurrence: US)
  Receive Date: 20150227
  Receipt Date: 20150227
  Transmission Date: 20150721
  Serious: Yes (Other)
  Sender: FDA-Public Use
  Company Number: US-TEVA-541820USA

PATIENT
  Age: 79 Year
  Sex: Male

DRUGS (3)
  1. RITUXIMAB [Suspect]
     Active Substance: RITUXIMAB
     Indication: PRODUCT USED FOR UNKNOWN INDICATION
     Dosage: 2 CYCLES/DOSE AND FREQUENCY NOT PROVIDED
  2. BENDAMUSTINE [Suspect]
     Active Substance: BENDAMUSTINE
     Indication: PRODUCT USED FOR UNKNOWN INDICATION
     Dosage: 2 CYCLES/DOSE AND FREQUENCY NOT PROVIDED
  3. IBRUTINIB [Suspect]
     Active Substance: IBRUTINIB
     Indication: PRODUCT USED FOR UNKNOWN INDICATION
     Dosage: DOSE AND FREQUENCY NOT PROVIDED

REACTIONS (7)
  - Pyrexia [Unknown]
  - Lymphoma [Unknown]
  - Rash erythematous [Not Recovered/Not Resolved]
  - Lymphadenopathy [Unknown]
  - Productive cough [Unknown]
  - Night sweats [Unknown]
  - Pancytopenia [Unknown]

NARRATIVE: CASE EVENT DATE: 201312
